FAERS Safety Report 15500725 (Version 3)
Quarter: 2018Q4

REPORT INFORMATION
  Report Type: Report from Study
  Country: JP (occurrence: JP)
  Receive Date: 20181015
  Receipt Date: 20181113
  Transmission Date: 20190205
  Serious: Yes (Hospitalization, Other)
  Sender: FDA-Public Use
  Company Number: JP-ELI_LILLY_AND_COMPANY-JP201810002085

PATIENT
  Age: 65 Year
  Sex: Male

DRUGS (1)
  1. IXEKIZUMAB [Suspect]
     Active Substance: IXEKIZUMAB
     Indication: PSORIASIS
     Dosage: UNK
     Route: 058
     Dates: start: 20180712

REACTIONS (4)
  - Fatigue [Not Recovered/Not Resolved]
  - Eczema [Recovered/Resolved]
  - Cellulitis [Recovered/Resolved]
  - Hyperglycaemia [Recovered/Resolved]

NARRATIVE: CASE EVENT DATE: 2018
